FAERS Safety Report 18812014 (Version 3)
Quarter: 2021Q4

REPORT INFORMATION
  Report Type: Report from Study
  Country: US (occurrence: US)
  Receive Date: 20210130
  Receipt Date: 20211016
  Transmission Date: 20220303
  Serious: No
  Sender: FDA-Public Use
  Company Number: NVSC2021US022551

PATIENT
  Sex: Male

DRUGS (2)
  1. ENTRESTO [Suspect]
     Active Substance: SACUBITRIL\VALSARTAN
     Indication: Product used for unknown indication
     Dosage: 24.26 MG, BID, (24/26, TAKE 2 TABS PO BID)
     Route: 048
  2. ENTRESTO [Suspect]
     Active Substance: SACUBITRIL\VALSARTAN
     Dosage: 97103 MG, BID
     Route: 048
     Dates: start: 202101

REACTIONS (4)
  - Hypertension [Unknown]
  - Fatigue [Unknown]
  - Cough [Unknown]
  - Bradykinesia [Unknown]
